FAERS Safety Report 9723777 (Version 1)
Quarter: 2013Q4

REPORT INFORMATION
  Report Type: Report from Study
  Country: JP (occurrence: JP)
  Receive Date: 20131202
  Receipt Date: 20131202
  Transmission Date: 20140711
  Serious: Yes (Other)
  Sender: FDA-Public Use
  Company Number: JP-OTSUKA-JP-2013-15641

PATIENT
  Age: 91 Year
  Sex: Male
  Weight: 51 kg

DRUGS (4)
  1. SAMSCA [Suspect]
     Indication: FLUID RETENTION
     Dosage: 7.5 MG MILLIGRAM(S), QAM
     Route: 048
     Dates: start: 20130403, end: 20130424
  2. HANP [Concomitant]
     Indication: CARDIAC FAILURE
     Dosage: 0.025 UG/KG/MIN, DAILY DOSE
     Route: 041
     Dates: end: 20130404
  3. LASIX [Concomitant]
     Indication: CARDIAC FAILURE
     Dosage: 40 MG MILLIGRAM(S), DAILY DOSE
     Route: 042
     Dates: end: 20130415
  4. MYOCOR [Concomitant]
     Indication: CARDIAC FAILURE
     Dosage: 25 MG MILLIGRAM(S), DAILY DOSE
     Route: 041
     Dates: start: 20130405, end: 20130409

REACTIONS (3)
  - Blood urea increased [Unknown]
  - Blood creatinine increased [Unknown]
  - Asthma [Not Recovered/Not Resolved]
